FAERS Safety Report 7546115-0 (Version None)
Quarter: 2011Q2

REPORT INFORMATION
  Report Type: 
  Country: None (occurrence: None)
  Receive Date: 20110614
  Receipt Date: 20031222
  Transmission Date: 20111010
  Serious: Yes (Death)
  Sender: FDA-Public Use
  Company Number: PHNR2003AU01551

PATIENT
  Sex: Male

DRUGS (3)
  1. CITALOPRAM [Concomitant]
     Dosage: 30 MG, QD
  2. ENALAPRIL MALEATE [Concomitant]
     Indication: HYPERTENSION
  3. CLOZAPINE [Suspect]
     Indication: SCHIZOPHRENIA
     Dosage: 50 - 600 MG, QD
     Dates: start: 19980925

REACTIONS (3)
  - CARDIAC ARREST [None]
  - MYOCARDIAL INFARCTION [None]
  - RESPIRATORY ARREST [None]
